FAERS Safety Report 4911505-9 (Version None)
Quarter: 2006Q1

REPORT INFORMATION
  Report Type: 
  Country: None (occurrence: None)
  Receive Date: 20060113
  Receipt Date: 20051007
  Transmission Date: 20060701
  Serious: No
  Sender: FDA-Public Use
  Company Number: 2005SP003414

PATIENT
  Age: 58 Year
  Sex: Female
  Weight: 90.7194 kg

DRUGS (4)
  1. LUNESTA [Suspect]
     Dosage: 0.5 MG; HS; ORAL
     Route: 048
     Dates: start: 20050101, end: 20050101
  2. SYNTHROID [Concomitant]
  3. DIOVAN HCT [Concomitant]
  4. ESTROGENS CONJUGATED [Concomitant]

REACTIONS (2)
  - DISTURBANCE IN ATTENTION [None]
  - ROAD TRAFFIC ACCIDENT [None]
